FAERS Safety Report 23982387 (Version 1)
Quarter: 2024Q2

REPORT INFORMATION
  Report Type: Spontaneous
  Country: PE (occurrence: PE)
  Receive Date: 20240617
  Receipt Date: 20240617
  Transmission Date: 20240716
  Serious: Yes (Other)
  Sender: FDA-Public Use
  Company Number: PE-PFIZER INC-PV202400059436

PATIENT
  Age: 43 Year
  Sex: Male

DRUGS (1)
  1. ENBREL [Suspect]
     Active Substance: BENZYL ALCOHOL\ETANERCEPT
     Indication: Product used for unknown indication
     Dosage: UNK
     Route: 058
     Dates: end: 202404

REACTIONS (3)
  - Tuberculosis [Unknown]
  - Interferon gamma release assay positive [Unknown]
  - Tuberculin test positive [Unknown]
